FAERS Safety Report 11810624 (Version 1)
Quarter: 2015Q4

REPORT INFORMATION
  Report Type: Spontaneous
  Country: US (occurrence: None)
  Receive Date: 20151207
  Receipt Date: 20151207
  Transmission Date: 20160305
  Serious: No
  Sender: FDA-Public Use
  Company Number: None

PATIENT
  Age: 53 Year
  Sex: Female

DRUGS (1)
  1. COPAXONE [Suspect]
     Active Substance: GLATIRAMER ACETATE
     Indication: MULTIPLE SCLEROSIS
     Route: 058
     Dates: start: 20151111, end: 20151115

REACTIONS (5)
  - Pruritus [None]
  - Urticaria [None]
  - Injection site pain [None]
  - Gait disturbance [None]
  - Skin disorder [None]

NARRATIVE: CASE EVENT DATE: 20151115
